FAERS Safety Report 6979514-6 (Version None)
Quarter: 2010Q3

REPORT INFORMATION
  Report Type: 
  Country: None (occurrence: None)
  Receive Date: 20100913
  Receipt Date: 20100906
  Transmission Date: 20110219
  Serious: Yes (Hospitalization, Other)
  Sender: FDA-Public Use
  Company Number: JP-ABBOTT-10P-087-0662195-00

PATIENT
  Sex: Female
  Weight: 27.6 kg

DRUGS (15)
  1. HUMIRA [Suspect]
     Indication: RHEUMATOID ARTHRITIS
     Route: 058
     Dates: end: 20100415
  2. HUMIRA [Suspect]
     Route: 058
     Dates: start: 20100511, end: 20100707
  3. RABEPRAZOLE SODIUM [Suspect]
     Indication: DUODENAL ULCER
     Dates: end: 20100414
  4. RABEPRAZOLE SODIUM [Suspect]
     Dates: start: 20100615, end: 20100707
  5. OMEPRAZOLE [Suspect]
     Indication: DUODENAL ULCER
     Dosage: 20MG X 2 BAGS, 2 IN 1 D
     Dates: end: 20100426
  6. SODIUM RISEDRONATE HYDRATE [Concomitant]
     Indication: OSTEOPOROSIS PROPHYLAXIS
     Route: 048
     Dates: start: 20100101
  7. PREDNISOLONE [Concomitant]
     Indication: RHEUMATOID ARTHRITIS
     Dates: start: 20100101, end: 20100511
  8. PREDNISOLONE [Concomitant]
     Dates: start: 20100722
  9. PREDNISOLONE [Concomitant]
     Dates: start: 20100101, end: 20100511
  10. ETODOLAC [Concomitant]
     Indication: RHEUMATOID ARTHRITIS
     Dates: start: 20100223
  11. REBAMIPIDE [Concomitant]
     Indication: RHEUMATOID ARTHRITIS
     Dates: start: 20100223, end: 20100609
  12. CELECOXIB [Concomitant]
     Indication: RHEUMATOID ARTHRITIS
     Dates: start: 20100511
  13. LANSOPRAZOLE [Concomitant]
     Indication: DUODENAL ULCER
     Dates: start: 20100427, end: 20100614
  14. FAMOTIDINE [Concomitant]
     Indication: DUODENAL ULCER
     Dates: start: 20100708
  15. ELCATONIN [Concomitant]
     Indication: OSTEOPOROSIS PROPHYLAXIS
     Dosage: 2 TO 3 TIMES PER MONTH
     Dates: start: 20100212, end: 20100415

REACTIONS (4)
  - ABDOMINAL PAIN UPPER [None]
  - DUODENAL ULCER PERFORATION [None]
  - EPISTAXIS [None]
  - PANCYTOPENIA [None]
